FAERS Safety Report 19730275 (Version 1)
Quarter: 2021Q3

REPORT INFORMATION
  Report Type: Report from Study
  Country: MX (occurrence: MX)
  Receive Date: 20210820
  Receipt Date: 20210820
  Transmission Date: 20211014
  Serious: Yes (Other)
  Sender: FDA-Public Use
  Company Number: NVSC2021MX184240

PATIENT
  Age: 56 Year
  Sex: Female
  Weight: 72 kg

DRUGS (2)
  1. COSENTYX [Suspect]
     Active Substance: SECUKINUMAB
     Indication: ANKYLOSING SPONDYLITIS
     Dosage: 150 MG, UNKNOWN
     Route: 058
     Dates: start: 20140828, end: 20160520
  2. ACLASTA [Suspect]
     Active Substance: ZOLEDRONIC ACID
     Indication: PRODUCT USED FOR UNKNOWN INDICATION
     Dosage: 1 DF, Q12MO (5 MG)
     Route: 042
     Dates: start: 20150929, end: 20181030

REACTIONS (6)
  - Cartilage atrophy [Unknown]
  - Ankylosing spondylitis [Unknown]
  - Pain [Unknown]
  - Inflammation [Unknown]
  - Osteopenia [Unknown]
  - Overweight [Unknown]

NARRATIVE: CASE EVENT DATE: 201509
